FAERS Safety Report 9008303 (Version 3)
Quarter: 2013Q2

REPORT INFORMATION
  Report Type: Report from Study
  Country: IL (occurrence: IL)
  Receive Date: 20130111
  Receipt Date: 20130429
  Transmission Date: 20140414
  Serious: Yes (Hospitalization)
  Sender: FDA-Public Use
  Company Number: IL-ABBOTT-13P-082-1033955-00

PATIENT
  Sex: Female
  Weight: 44 kg

DRUGS (3)
  1. HUMIRA [Suspect]
     Indication: CROHN^S DISEASE
     Route: 058
     Dates: start: 20121128
  2. CIPRALEX [Concomitant]
     Indication: DEPRESSION
     Route: 048
  3. CLONEX [Concomitant]
     Indication: DEPRESSION
     Route: 048

REACTIONS (7)
  - Weight decreased [Recovering/Resolving]
  - Injection site haematoma [Unknown]
  - Diarrhoea [Recovered/Resolved]
  - Vomiting [Recovered/Resolved]
  - Abdominal pain upper [Recovering/Resolving]
  - Thrombosis [Unknown]
  - Drug ineffective [Unknown]
